FAERS Safety Report 7456379-X (Version None)
Quarter: 2011Q2

REPORT INFORMATION
  Report Type: 
  Country: None (occurrence: None)
  Receive Date: 20110503
  Receipt Date: 20110421
  Transmission Date: 20111010
  Serious: Yes (Life-Threatening)
  Sender: FDA-Public Use
  Company Number: JP-PFIZER INC-2011094059

PATIENT
  Age: 45 Year
  Sex: Female

DRUGS (8)
  1. FAMOTIDINE [Concomitant]
  2. SEIBULE [Suspect]
     Indication: DIABETES MELLITUS
     Dosage: 50 MG, 3X/DAY
     Route: 048
     Dates: start: 20110207, end: 20110316
  3. MIYA BM [Concomitant]
  4. BONALON [Concomitant]
  5. PERSANTIN [Concomitant]
  6. LOCHOLEST [Concomitant]
  7. PREDONINE [Concomitant]
  8. BAKTAR [Concomitant]

REACTIONS (1)
  - PNEUMATOSIS INTESTINALIS [None]
